FAERS Safety Report 20614071 (Version 2)
Quarter: 2022Q2

REPORT INFORMATION
  Report Type: Spontaneous
  Country: JP (occurrence: JP)
  Receive Date: 20220320
  Receipt Date: 20220420
  Transmission Date: 20220721
  Serious: Yes (Hospitalization, Other)
  Sender: FDA-Public Use
  Company Number: JP-002147023-NVSJ2022JP004474

PATIENT
  Sex: Male

DRUGS (2)
  1. XOLAIR [Suspect]
     Active Substance: OMALIZUMAB
     Indication: Asthma
     Dosage: SOLUTION FOR INJECTION IN PRE-FILLED SYRINGE
     Route: 058
  2. XOLAIR [Suspect]
     Active Substance: OMALIZUMAB
     Dosage: SOLUTION FOR INJECTION IN PRE-FILLED SYRINGE
     Route: 058
     Dates: end: 20220111

REACTIONS (6)
  - Ischaemic cerebral infarction [Not Recovered/Not Resolved]
  - Movement disorder [Unknown]
  - Gait disturbance [Unknown]
  - Dysphagia [Unknown]
  - Dysarthria [Unknown]
  - Hemiplegia [Unknown]

NARRATIVE: CASE EVENT DATE: 20220119
